FAERS Safety Report 10204860 (Version 1)
Quarter: 2014Q2

REPORT INFORMATION
  Report Type: Spontaneous
  Country: US (occurrence: None)
  Receive Date: 20140527
  Receipt Date: 20140527
  Transmission Date: 20141212
  Serious: Yes (Hospitalization)
  Sender: FDA-Public Use
  Company Number: None

PATIENT
  Age: 46 Year
  Sex: Male

DRUGS (5)
  1. TACROLIMUS [Suspect]
     Indication: PROPHYLAXIS AGAINST GRAFT VERSUS HOST DISEASE
     Route: 042
     Dates: start: 20120430, end: 20120523
  2. FUROSEMIDE [Concomitant]
  3. HALOPERIDOL [Concomitant]
  4. LORAZEPAM [Concomitant]
  5. POTASSIUM CHLORIDE [Concomitant]

REACTIONS (8)
  - Blood pressure increased [None]
  - Blood magnesium decreased [None]
  - Respiratory failure [None]
  - Mental status changes [None]
  - Delirium [None]
  - Posterior reversible encephalopathy syndrome [None]
  - Encephalopathy [None]
  - Progressive multifocal leukoencephalopathy [None]
